FAERS Safety Report 15004786 (Version 1)
Quarter: 2018Q2

REPORT INFORMATION
  Report Type: Spontaneous
  Country: RO (occurrence: RO)
  Receive Date: 20180613
  Receipt Date: 20180613
  Transmission Date: 20180711
  Serious: Yes (Other)
  Sender: FDA-Public Use
  Company Number: RO-AUROBINDO-AUR-APL-2018-030671

PATIENT
  Age: 62 Year
  Sex: Female

DRUGS (15)
  1. ZOLPIDEM [Concomitant]
     Active Substance: ZOLPIDEM\ZOLPIDEM TARTRATE
     Indication: INSOMNIA
     Dosage: UNK
     Route: 048
  2. BETASERC                           /00141801/ [Concomitant]
     Active Substance: BETAHISTINE
     Indication: VERTIGO
     Dosage: 1 DOSAGE FORM, DAILY
     Route: 048
  3. BETASERC                           /00141801/ [Concomitant]
     Active Substance: BETAHISTINE
     Indication: DIZZINESS
     Dosage: 0.5 DOSAGE FORM, DAILY
     Route: 048
  4. SPIRONOLACTONE. [Concomitant]
     Active Substance: SPIRONOLACTONE
     Indication: LIVER DISORDER
     Dosage: 3 DOSAGE FORM, DAILY
     Route: 048
  5. PROPANOLOL                         /00030001/ [Concomitant]
     Active Substance: PROPRANOLOL HYDROCHLORIDE
     Indication: VARICES OESOPHAGEAL
     Dosage: UNK
     Route: 048
  6. RIBAVIRIN FILM COATED TABLETS [Suspect]
     Active Substance: RIBAVIRIN
     Indication: HEPATIC CIRRHOSIS
     Dosage: 4 DOSAGE FORM, DAILY
     Route: 048
  7. LEDIPASVIR W/SOFOSBUVIR [Suspect]
     Active Substance: LEDIPASVIR\SOFOSBUVIR
     Indication: HEPATIC CIRRHOSIS
     Dosage: UNK
     Route: 065
  8. DIUREMID                           /00032601/ [Concomitant]
     Active Substance: FUROSEMIDE
     Indication: CARDIAC DISORDER
     Dosage: UNK
     Route: 048
  9. VEROSPIRON [Concomitant]
     Active Substance: SPIRONOLACTONE
     Indication: LIVER DISORDER
     Dosage: UNK
     Route: 048
  10. LEDIPASVIR W/SOFOSBUVIR [Suspect]
     Active Substance: LEDIPASVIR\SOFOSBUVIR
     Indication: HEPATITIS C
     Dosage: 1 DOSAGE FORM, DAILY
     Route: 048
     Dates: start: 20171119
  11. ACCUPRO [Concomitant]
     Active Substance: QUINAPRIL HYDROCHLORIDE
     Indication: HYPERTENSION
     Dosage: UNK
     Route: 048
  12. ACCUPRO [Concomitant]
     Active Substance: QUINAPRIL HYDROCHLORIDE
     Indication: CARDIAC DISORDER
     Dosage: UNK
     Route: 065
  13. RIBAVIRIN FILM COATED TABLETS [Suspect]
     Active Substance: RIBAVIRIN
     Indication: PRODUCT USED FOR UNKNOWN INDICATION
     Dosage: 5 DOSAGE FORM, DAILY, THIRD MONTH
     Route: 048
  14. RIBAVIRIN FILM COATED TABLETS [Suspect]
     Active Substance: RIBAVIRIN
     Indication: HEPATITIS C
     Dosage: 3 DOSAGE FORM, DAILY, FIRST MONTH
     Route: 048
     Dates: start: 20171119
  15. LIV 52                             /06293501/ [Concomitant]
     Indication: LIVER DISORDER
     Dosage: 2 DOSAGE FORM, DAILY
     Route: 048

REACTIONS (9)
  - Constipation [Not Recovered/Not Resolved]
  - Decreased appetite [Not Recovered/Not Resolved]
  - Vertigo [Not Recovered/Not Resolved]
  - Spinal disorder [Not Recovered/Not Resolved]
  - Liver disorder [Unknown]
  - Weight decreased [Recovered/Resolved]
  - Dizziness [Unknown]
  - Peripheral coldness [Not Recovered/Not Resolved]
  - Weight increased [Not Recovered/Not Resolved]

NARRATIVE: CASE EVENT DATE: 201801
